FAERS Safety Report 10158077 (Version 1)
Quarter: 2014Q2

REPORT INFORMATION
  Report Type: Spontaneous
  Country: US (occurrence: US)
  Receive Date: 20140507
  Receipt Date: 20140507
  Transmission Date: 20141212
  Serious: No
  Sender: FDA-Public Use
  Company Number: US-BAYER-2014-060364

PATIENT
  Sex: Female

DRUGS (3)
  1. ALKA-SELTZER ORIGINAL [Suspect]
  2. BAYER GENUINE ASPIRIN ORIGINAL STRENGTH [Suspect]
  3. ALEVE CAPLET [Suspect]

REACTIONS (3)
  - Intentional product misuse [None]
  - Intentional product misuse [None]
  - Headache [None]
